FAERS Safety Report 6976310-0 (Version None)
Quarter: 2010Q3

REPORT INFORMATION
  Report Type: 
  Country: None (occurrence: None)
  Receive Date: 20100910
  Receipt Date: 20100902
  Transmission Date: 20110219
  Serious: Yes (Other)
  Sender: FDA-Public Use
  Company Number: US-SANOFI-AVENTIS-2010SA042646

PATIENT
  Age: 70 Year
  Sex: Female
  Weight: 71.66 kg

DRUGS (10)
  1. TAXOTERE [Suspect]
     Indication: BREAST CANCER
     Route: 041
     Dates: start: 20100412, end: 20100412
  2. TAXOTERE [Suspect]
     Route: 041
     Dates: start: 20100412, end: 20100412
  3. TAXOTERE [Suspect]
     Route: 041
     Dates: start: 20100614, end: 20100614
  4. TAXOTERE [Suspect]
     Route: 041
     Dates: start: 20100614, end: 20100614
  5. CYTOXAN [Suspect]
     Indication: BREAST CANCER
     Route: 042
  6. CYTOXAN [Suspect]
     Route: 042
  7. CYTOXAN [Suspect]
     Route: 042
  8. CYTOXAN [Suspect]
     Route: 042
  9. ALL OTHER THERAPEUTIC PRODUCTS [Concomitant]
     Indication: PREMEDICATION
  10. SIMVASTATIN [Concomitant]

REACTIONS (7)
  - BLISTER [None]
  - ERYTHEMA [None]
  - HYPOAESTHESIA [None]
  - ILIAC ARTERY OCCLUSION [None]
  - IMMOBILE [None]
  - NEUROPATHY PERIPHERAL [None]
  - SLEEP DISORDER [None]
